FAERS Safety Report 7445455-3 (Version None)
Quarter: 2011Q2

REPORT INFORMATION
  Report Type: 
  Country: None (occurrence: None)
  Receive Date: 20110429
  Receipt Date: 20110426
  Transmission Date: 20111010
  Serious: Yes (Other)
  Sender: FDA-Public Use
  Company Number: BR-PFIZER INC-2011061227

PATIENT
  Age: 65 Year
  Sex: Female
  Weight: 45 kg

DRUGS (5)
  1. DIAZEPAM [Concomitant]
     Indication: DEPRESSION
     Dosage: UNK
  2. PAMELOR [Concomitant]
     Indication: DEPRESSION
     Dosage: UNK
  3. CALCIUM CITRATE [Concomitant]
     Indication: OSTEOPOROSIS
     Dosage: UNK
  4. CHAMPIX [Suspect]
     Indication: TOBACCO ABUSE
     Dosage: 0.5 MG, 1X/DAY
     Route: 048
     Dates: start: 20110317, end: 20110101
  5. ALENIA [Concomitant]
     Indication: BRONCHITIS CHRONIC
     Dosage: UNK
     Dates: start: 20101201

REACTIONS (3)
  - ANXIETY [None]
  - DEPRESSED MOOD [None]
  - WEIGHT DECREASED [None]
